FAERS Safety Report 8701476 (Version 2)
Quarter: 2013Q4

REPORT INFORMATION
  Report Type: Spontaneous
  Country: US (occurrence: US)
  Receive Date: 20120802
  Receipt Date: 20131031
  Transmission Date: 20140711
  Serious: Yes (Disabling, Other)
  Sender: FDA-Public Use
  Company Number: US-009507513-1207USA011323

PATIENT
  Age: 48 Year
  Sex: Female

DRUGS (20)
  1. ZOCOR [Suspect]
     Dosage: 40 MG, UNK
     Route: 048
  2. ATIVAN [Suspect]
     Dosage: 1 MG, TID
     Route: 048
  3. REMERON [Suspect]
     Dosage: 30 MG, UNK
     Route: 048
  4. ZANTAC [Suspect]
     Dosage: 300 MG, TID
  5. TYLENOL [Suspect]
     Dosage: 1 DF, QD
  6. LANTUS [Suspect]
     Dosage: 80 IU, UNK
  7. LANTUS [Suspect]
     Dosage: 90 IU, UNK
  8. FUROSEMIDE [Suspect]
     Dosage: 40 MG, BID
     Route: 048
  9. HUMULIN [Suspect]
     Dosage: 24 IU, TID
  10. DEPAKOTE [Suspect]
     Dosage: 500 MG, BID
     Route: 048
  11. LACTULOSE [Suspect]
     Dosage: 30 MG, PRN
  12. ASPIRIN [Suspect]
     Dosage: 81 MG, PRN
  13. POTASSIUM CHLORIDE - USP (WARRICK) [Suspect]
     Dosage: 8 MEQ, QD
  14. ISOSORBIDE MONONITRATE [Suspect]
     Dosage: 30 MG, TID
  15. METHOCARBAMOL [Suspect]
     Dosage: 750 MG, PRN
     Route: 048
  16. DILANTIN [Suspect]
     Dosage: 300 MG, BID
     Route: 048
  17. NITROSTAT [Suspect]
     Dosage: 0.4 MG, PRN
  18. NORVASC [Suspect]
     Dosage: UNK
     Route: 048
  19. LOMOTIL [Suspect]
     Dosage: 2.5 (4 IN D) MG,
     Route: 048
  20. ATENOLOL [Suspect]
     Dosage: 25 MG, QD
     Route: 048

REACTIONS (4)
  - Bedridden [Unknown]
  - Amnesia [Unknown]
  - Emphysema [Unknown]
  - Chronic obstructive pulmonary disease [Unknown]
